FAERS Safety Report 4492240-0 (Version None)
Quarter: 2004Q4

REPORT INFORMATION
  Report Type: 
  Country: None (occurrence: None)
  Receive Date: 20041101
  Receipt Date: 20041021
  Transmission Date: 20050328
  Serious: Yes (Other)
  Sender: FDA-Public Use
  Company Number: K200401642

PATIENT
  Age: 73 Year
  Sex: Female
  Weight: 77.6 kg

DRUGS (7)
  1. LEVOXYL [Suspect]
     Indication: HYPOTHYROIDISM
     Dosage: 125 MCG, QD, ORAL
     Route: 048
     Dates: start: 20040901
  2. PREDNISONE [Concomitant]
  3. ALBUTEROL [Concomitant]
  4. SINGULAIR (MONTELUKAST) [Concomitant]
  5. ADVAIR (SALMETEROL XINAFOATE, FLUTICASONE PROPIONATE) POWDER [Concomitant]
  6. ESTROPIPATE [Concomitant]
  7. LASIX [Concomitant]

REACTIONS (23)
  - ABDOMINAL DISTENSION [None]
  - ABDOMINAL PAIN [None]
  - BLOOD PRESSURE INCREASED [None]
  - BUCCAL MUCOSAL ROUGHENING [None]
  - CONFUSIONAL STATE [None]
  - DRY MOUTH [None]
  - DYSPHAGIA [None]
  - DYSPNOEA [None]
  - FACE OEDEMA [None]
  - FEAR [None]
  - FREQUENT BOWEL MOVEMENTS [None]
  - GLOSSODYNIA [None]
  - HEADACHE [None]
  - HYPERHIDROSIS [None]
  - IMPATIENCE [None]
  - INSOMNIA [None]
  - NIGHT SWEATS [None]
  - ORAL CANDIDIASIS [None]
  - OXYGEN SATURATION DECREASED [None]
  - PHARYNGOLARYNGEAL PAIN [None]
  - STOMATITIS [None]
  - TONGUE DISORDER [None]
  - WEIGHT INCREASED [None]
